FAERS Safety Report 11418434 (Version 1)
Quarter: 2015Q3

REPORT INFORMATION
  Report Type: Spontaneous
  Country: US (occurrence: US)
  Receive Date: 20150826
  Receipt Date: 20150826
  Transmission Date: 20151125
  Serious: No
  Sender: FDA-Public Use
  Company Number: US-NOVEN PHARMACEUTICALS, INC.-US2015000354

PATIENT
  Age: 55 Year
  Sex: Female

DRUGS (3)
  1. PRISTIQ EXTENDED RELEASE [Suspect]
     Active Substance: DESVENLAFAXINE SUCCINATE
     Indication: PRODUCT USED FOR UNKNOWN INDICATION
     Dosage: 25 MG,
     Route: 065
     Dates: start: 201504
  2. MINIVELLE [Suspect]
     Active Substance: ESTRADIOL
     Indication: DEPRESSION
     Dosage: 0.025 MG, UNKNOWN
     Route: 062
     Dates: start: 20150423
  3. MINIVELLE [Suspect]
     Active Substance: ESTRADIOL
     Indication: OSTEOPOROSIS

REACTIONS (3)
  - Drug prescribing error [Unknown]
  - Discomfort [Unknown]
  - Abdominal distension [Unknown]
